FAERS Safety Report 4984576-1 (Version None)
Quarter: 2006Q2

REPORT INFORMATION
  Report Type: 
  Country: None (occurrence: None)
  Receive Date: 20060420
  Receipt Date: 20060410
  Transmission Date: 20061013
  Serious: Yes (Hospitalization)
  Sender: FDA-Public Use
  Company Number: 2006-141125-NL

PATIENT
  Age: 84 Year
  Sex: Female

DRUGS (6)
  1. MIRTAZAPINE [Suspect]
     Indication: SLEEP DISORDER
     Dosage: 15 MG QD ORAL
     Route: 048
     Dates: start: 20051101, end: 20060307
  2. AMIODARONE HCL [Suspect]
     Dosage: 200 MG ORAL
     Route: 048
     Dates: start: 20000615
  3. NOCTRAN 10 [Concomitant]
  4. GLYCERYL TRINITRATE [Concomitant]
  5. LYSINE ASPIRIN [Concomitant]
  6. LEVOTHYROXINE SODIUM [Concomitant]

REACTIONS (3)
  - MALAISE [None]
  - SYNCOPE [None]
  - TORSADE DE POINTES [None]
